FAERS Safety Report 19761219 (Version 1)
Quarter: 2021Q3

REPORT INFORMATION
  Report Type: Spontaneous
  Country: US (occurrence: US)
  Receive Date: 20210825
  Receipt Date: 20210825
  Transmission Date: 20211014
  Serious: No
  Sender: FDA-Public Use
  Company Number: None

PATIENT
  Sex: Female

DRUGS (1)
  1. TREMFYA [Suspect]
     Active Substance: GUSELKUMAB
     Indication: PSORIASIS
     Dosage: INJECT 1 PEN SUBCUTANEOUS AT WEEK 0, WEEK 4, AND THEN EVERY 8 WEEKS THEREAFTER
     Route: 058
     Dates: start: 202106

REACTIONS (2)
  - Drug ineffective [None]
  - Therapy cessation [None]
